FAERS Safety Report 15591990 (Version 1)
Quarter: 2018Q4

REPORT INFORMATION
  Report Type: Spontaneous
  Country: US (occurrence: US)
  Receive Date: 20181106
  Receipt Date: 20181106
  Transmission Date: 20190205
  Serious: No
  Sender: FDA-Public Use
  Company Number: US-MYLANLABS-2018M1078479

PATIENT
  Sex: Female
  Weight: 67 kg

DRUGS (2)
  1. COLD EEZE [Suspect]
     Active Substance: ZINC GLUCONATE
     Indication: NASOPHARYNGITIS
     Dosage: UNK
  2. DOXYCYCLINE. [Suspect]
     Active Substance: DOXYCYCLINE
     Indication: DIVERTICULITIS
     Dosage: UNK
     Route: 048

REACTIONS (2)
  - Drug interaction [Not Recovered/Not Resolved]
  - No adverse event [Unknown]
